FAERS Safety Report 11068175 (Version 1)
Quarter: 2015Q2

REPORT INFORMATION
  Report Type: Spontaneous
  Country: DE (occurrence: DE)
  Receive Date: 20150427
  Receipt Date: 20150427
  Transmission Date: 20150821
  Serious: Yes (Other)
  Sender: FDA-Public Use
  Company Number: DE-ROCHE-1500998

PATIENT
  Age: 70 Year
  Sex: Male
  Weight: 82 kg

DRUGS (3)
  1. DABRAFENIB [Concomitant]
     Active Substance: DABRAFENIB
  2. ZELBORAF [Suspect]
     Active Substance: VEMURAFENIB
     Indication: MALIGNANT MELANOMA
     Dosage: 1-0-1
     Route: 048
     Dates: start: 20140327
  3. ZELBORAF [Suspect]
     Active Substance: VEMURAFENIB
     Route: 048
     Dates: start: 20140613

REACTIONS (7)
  - Nausea [Unknown]
  - Pruritus [Unknown]
  - Blister [Unknown]
  - Drug eruption [Recovered/Resolved]
  - Mycosis fungoides [Recovered/Resolved]
  - Eosinophilia [Unknown]
  - Flushing [Unknown]

NARRATIVE: CASE EVENT DATE: 20140513
